FAERS Safety Report 5452329-6 (Version None)
Quarter: 2007Q3

REPORT INFORMATION
  Report Type: 
  Country: None (occurrence: None)
  Receive Date: 20070914
  Receipt Date: 20070906
  Transmission Date: 20080115
  Serious: Yes (Hospitalization, Other)
  Sender: FDA-Public Use
  Company Number: JP-JNJFOC-20070706976

PATIENT
  Age: 35 Year
  Sex: Male
  Weight: 68 kg

DRUGS (12)
  1. HALOMONTH [Suspect]
     Route: 030
  2. HALOMONTH [Suspect]
     Indication: SCHIZOPHRENIA
     Route: 030
  3. HALOPERIDOL [Suspect]
     Indication: SCHIZOPHRENIA
     Route: 048
  4. BIPERIDEN LACTATE [Concomitant]
     Route: 048
  5. BIPERIDEN LACTATE [Concomitant]
     Route: 048
  6. BIPERIDEN LACTATE [Concomitant]
     Route: 048
  7. BIPERIDEN LACTATE [Concomitant]
     Indication: PARKINSONISM
     Route: 048
  8. LEVOMEPROMAZINE MALEATE [Concomitant]
     Route: 048
  9. LEVOMEPROMAZINE MALEATE [Concomitant]
     Route: 048
  10. LEVOMEPROMAZINE MALEATE [Concomitant]
     Route: 048
  11. LEVOMEPROMAZINE MALEATE [Concomitant]
     Route: 048
  12. LEVOMEPROMAZINE MALEATE [Concomitant]
     Indication: SCHIZOPHRENIA
     Route: 048

REACTIONS (3)
  - NEUROLEPTIC MALIGNANT SYNDROME [None]
  - PARKINSONISM [None]
  - PNEUMONIA ASPIRATION [None]
